FAERS Safety Report 18326200 (Version 2)
Quarter: 2020Q4

REPORT INFORMATION
  Report Type: Spontaneous
  Country: IT (occurrence: IT)
  Receive Date: 20200929
  Receipt Date: 20201002
  Transmission Date: 20210113
  Serious: Yes (Hospitalization)
  Sender: FDA-Public Use
  Company Number: IT-MYLANLABS-2020M1082778

PATIENT
  Age: 48 Year
  Sex: Male

DRUGS (4)
  1. SEROQUEL [Suspect]
     Active Substance: QUETIAPINE FUMARATE
     Indication: PRODUCT USED FOR UNKNOWN INDICATION
     Dosage: 1 DOSAGE FORM, QD
     Route: 048
  2. LITHIUM. [Suspect]
     Active Substance: LITHIUM
     Indication: PRODUCT USED FOR UNKNOWN INDICATION
     Dosage: 1 DOSAGE FORM, QD
     Route: 048
  3. ALOPERIDOLO GALENICA SENESE [Suspect]
     Active Substance: HALOPERIDOL
     Indication: PRODUCT USED FOR UNKNOWN INDICATION
     Dosage: 10 MILLIGRAM, QD
     Dates: start: 20200822, end: 20200901
  4. RISPERIDONE. [Suspect]
     Active Substance: RISPERIDONE
     Indication: EXTRAPYRAMIDAL DISORDER
     Dosage: 1 DOSAGE FORM, QD
     Route: 048
     Dates: start: 20200828, end: 20200905

REACTIONS (5)
  - Rhabdomyolysis [Recovering/Resolving]
  - Hyperthermia [Recovering/Resolving]
  - Neuroleptic malignant syndrome [Recovering/Resolving]
  - Hypertonia [Recovering/Resolving]
  - Medication error [Recovering/Resolving]

NARRATIVE: CASE EVENT DATE: 20200907
